FAERS Safety Report 5117689-4 (Version None)
Quarter: 2006Q3

REPORT INFORMATION
  Report Type: 
  Country: None (occurrence: None)
  Receive Date: 20060926
  Receipt Date: 20060913
  Transmission Date: 20061208
  Serious: Yes (Death)
  Sender: FDA-Public Use
  Company Number: 147597USA

PATIENT
  Age: 62 Year
  Sex: Male

DRUGS (6)
  1. CARBOPLATIN [Suspect]
     Indication: NON-SMALL CELL LUNG CANCER
     Dosage: (1123 MG/M2), INTRAVENOUS
     Route: 042
  2. CISPLATIN [Suspect]
     Indication: NON-SMALL CELL LUNG CANCER
     Dosage: (240 MG/M2), INTRAVENOUS
     Route: 042
  3. ETOPOSIDE [Suspect]
     Indication: NON-SMALL CELL LUNG CANCER
     Dosage: (720 MG/M2), INTRAVENOUS
     Route: 042
  4. PACLITAXEL [Suspect]
     Indication: NON-SMALL CELL LUNG CANCER
     Dosage: INTRAVENOUS
     Route: 042
  5. DOCETAXEL [Suspect]
     Indication: NON-SMALL CELL LUNG CANCER
  6. GEMCITABINE [Suspect]
     Indication: NON-SMALL CELL LUNG CANCER

REACTIONS (8)
  - CHRONIC MYELOMONOCYTIC LEUKAEMIA [None]
  - MALIGNANT NEOPLASM PROGRESSION [None]
  - MARROW HYPERPLASIA [None]
  - METASTASES TO LUNG [None]
  - NO THERAPEUTIC RESPONSE [None]
  - NON-SMALL CELL LUNG CANCER METASTATIC [None]
  - THERAPEUTIC RESPONSE DECREASED [None]
  - TRISOMY 8 [None]
